FAERS Safety Report 16024464 (Version 2)
Quarter: 2019Q2

REPORT INFORMATION
  Report Type: Spontaneous
  Country: US (occurrence: US)
  Receive Date: 20190301
  Receipt Date: 20190416
  Transmission Date: 20190711
  Serious: Yes (Other)
  Sender: FDA-Public Use
  Company Number: US-PFIZER INC-2019082106

PATIENT
  Age: 59 Year
  Sex: Female
  Weight: 113.5 kg

DRUGS (1)
  1. GABAPENTIN. [Suspect]
     Active Substance: GABAPENTIN
     Indication: NEUROPATHY PERIPHERAL
     Dosage: 300 MG, 3X/DAY

REACTIONS (4)
  - Hypoaesthesia [Unknown]
  - Neoplasm malignant [Unknown]
  - Drug ineffective [Unknown]
  - Grip strength decreased [Unknown]
